FAERS Safety Report 25211365 (Version 1)
Quarter: 2025Q2

REPORT INFORMATION
  Report Type: Report from Study
  Country: US (occurrence: US)
  Receive Date: 20250417
  Receipt Date: 20250417
  Transmission Date: 20250717
  Serious: Yes (Other)
  Sender: ABBVIE
  Company Number: US-ABBVIE-6225524

PATIENT
  Age: 62 Year
  Sex: Female

DRUGS (2)
  1. CREON [Suspect]
     Active Substance: PANCRELIPASE AMYLASE\PANCRELIPASE LIPASE\PANCRELIPASE PROTEASE
     Indication: Product used for unknown indication
     Route: 048
     Dates: start: 19910101
  2. VANCOMYCIN [Suspect]
     Active Substance: VANCOMYCIN
     Indication: Product used for unknown indication
     Route: 065

REACTIONS (13)
  - Ligament operation [Recovered/Resolved]
  - Sinus disorder [Unknown]
  - Abdominal pain upper [Recovered/Resolved]
  - Immunisation reaction [Recovered/Resolved]
  - Oropharyngeal pain [Unknown]
  - Intervertebral disc degeneration [Unknown]
  - Back pain [Unknown]
  - Dyspnoea [Recovered/Resolved]
  - Laryngitis [Unknown]
  - Abdominal distension [Recovered/Resolved]
  - Peripheral swelling [Recovered/Resolved]
  - Rash macular [Unknown]
  - Pruritus [Unknown]

NARRATIVE: CASE EVENT DATE: 20100101
